FAERS Safety Report 8900623 (Version 2)
Quarter: 2012Q4

REPORT INFORMATION
  Report Type: 
  Country: FR (occurrence: FR)
  Receive Date: 20121109
  Receipt Date: 20121126
  Transmission Date: 20130627
  Serious: Yes (Hospitalization)
  Sender: FDA-Public Use
  Company Number: FR-NAPPMUNDI-GBR-2012-0012015

PATIENT
  Age: 82 Year
  Sex: Female

DRUGS (2)
  1. OXYCONTIN LP, COMPRIME PELLICULE A LIBERATION PROLONGEE [Suspect]
     Indication: PAIN
     Dosage: 40 mg, (up to 6 tablets daily)
     Route: 048
     Dates: start: 20121007, end: 20121011
  2. OXYNORM 10 MG, GELULE [Concomitant]
     Indication: PRODUCT USED FOR UNKNOWN INDICATION
     Dosage: 10 mg, (up to 6 capsules per day)
     Route: 048
     Dates: start: 20121007

REACTIONS (3)
  - Accidental overdose [Recovered/Resolved]
  - Confusional state [Recovered/Resolved]
  - Incorrect dose administered [Recovered/Resolved]
